FAERS Safety Report 8479828-7 (Version None)
Quarter: 2012Q2

REPORT INFORMATION
  Report Type: 
  Country: None (occurrence: None)
  Receive Date: 20120629
  Receipt Date: 20120618
  Transmission Date: 20120825
  Serious: Yes (Other)
  Sender: FDA-Public Use
  Company Number: JP-JNJFOC-20120611958

PATIENT
  Sex: Male
  Weight: 42 kg

DRUGS (16)
  1. NELUROLEN [Concomitant]
     Indication: INSOMNIA
     Route: 048
  2. CLONAZEPAM [Concomitant]
     Indication: EPILEPSY
     Route: 048
     Dates: start: 20110511, end: 20110517
  3. PHENOBARBITAL TAB [Concomitant]
     Indication: INSOMNIA
     Dosage: 1 DF/DAY
     Route: 048
     Dates: start: 20111216
  4. CLONAZEPAM [Concomitant]
     Route: 048
     Dates: start: 20110518
  5. RISPERDAL [Suspect]
     Indication: PRODUCT USED FOR UNKNOWN INDICATION
     Route: 048
  6. ZYPREXA [Suspect]
     Indication: SCHIZOPHRENIA, DISORGANISED TYPE
     Route: 048
  7. DEPAKENE [Concomitant]
     Indication: EPILEPSY
     Route: 048
  8. CLONAZEPAM [Concomitant]
     Route: 048
     Dates: start: 20110506, end: 20110510
  9. MAGMITT [Concomitant]
     Route: 048
     Dates: start: 20120302
  10. DIAZEPAM [Concomitant]
     Indication: INSOMNIA
     Route: 048
     Dates: start: 20111206, end: 20111218
  11. INVEGA [Suspect]
     Route: 048
     Dates: start: 20110421, end: 20110425
  12. INVEGA [Suspect]
     Route: 048
     Dates: start: 20110426
  13. CLONAZEPAM [Concomitant]
     Route: 048
     Dates: start: 20110430, end: 20110505
  14. MAGMITT [Concomitant]
     Indication: CONSTIPATION
     Route: 048
     Dates: end: 20120301
  15. INVEGA [Suspect]
     Indication: SCHIZOPHRENIA, DISORGANISED TYPE
     Route: 048
     Dates: start: 20110416, end: 20110420
  16. FLUNITRAZEPAM [Concomitant]
     Indication: INSOMNIA
     Route: 048

REACTIONS (2)
  - ILEUS [None]
  - PNEUMONIA [None]
